FAERS Safety Report 14750441 (Version 1)
Quarter: 2018Q2

REPORT INFORMATION
  Report Type: Spontaneous
  Country: US (occurrence: US)
  Receive Date: 20180412
  Receipt Date: 20180412
  Transmission Date: 20180711
  Serious: No
  Sender: FDA-Public Use
  Company Number: US-TEVA-2018-US-871784

PATIENT
  Sex: Male

DRUGS (1)
  1. MINOXIDIL. [Suspect]
     Active Substance: MINOXIDIL
     Indication: ALOPECIA
     Dates: start: 2016

REACTIONS (3)
  - Product use issue [Unknown]
  - Pruritus [Unknown]
  - Scab [Unknown]

NARRATIVE: CASE EVENT DATE: 2016
